FAERS Safety Report 16946482 (Version 2)
Quarter: 2020Q3

REPORT INFORMATION
  Report Type: Report from Study
  Country: US (occurrence: US)
  Receive Date: 20191022
  Receipt Date: 20200312
  Transmission Date: 20201104
  Serious: Yes (Hospitalization)
  Sender: FDA-Public Use
  Company Number: US-PFIZER INC-2019452755

PATIENT
  Age: 72 Year
  Sex: Female
  Weight: 63.3 kg

DRUGS (2)
  1. AVELUMAB [Suspect]
     Active Substance: AVELUMAB
     Indication: ENDOMETRIAL CANCER
     Dosage: 10 MG/KG, CYCLIC (EVERY TWO WEEKS)
     Route: 042
     Dates: start: 20190925, end: 20191009
  2. TALAZOPARIB. [Suspect]
     Active Substance: TALAZOPARIB
     Indication: ENDOMETRIAL CANCER
     Dosage: 1 MG, 1X/DAY
     Route: 048
     Dates: start: 20190925, end: 20191012

REACTIONS (1)
  - Failure to thrive [Unknown]

NARRATIVE: CASE EVENT DATE: 20191017
